FAERS Safety Report 10110046 (Version 2)
Quarter: 2014Q2

REPORT INFORMATION
  Report Type: Report from Study
  Country: US (occurrence: US)
  Receive Date: 20140425
  Receipt Date: 20140425
  Transmission Date: 20141212
  Serious: Yes (Other)
  Sender: FDA-Public Use
  Company Number: US-ABBVIE-14P-163-1226027-00

PATIENT
  Age: 35 Year
  Sex: Male

DRUGS (7)
  1. HUMIRA [Suspect]
     Indication: CROHN^S DISEASE
     Dates: start: 201106, end: 201210
  2. HUMIRA [Suspect]
     Dates: start: 201301
  3. HUMIRA [Suspect]
     Dates: start: 20140407
  4. BUDESONIDE [Concomitant]
     Indication: PRODUCT USED FOR UNKNOWN INDICATION
     Dates: start: 201301
  5. VITAMIN B12 [Concomitant]
     Indication: BLOOD IRON DECREASED
  6. PROBIOTICS NOS [Concomitant]
     Indication: PRODUCT USED FOR UNKNOWN INDICATION
  7. ADVIL [Concomitant]
     Indication: PRODUCT USED FOR UNKNOWN INDICATION

REACTIONS (23)
  - Intestinal stenosis [Not Recovered/Not Resolved]
  - Herpes zoster [Recovered/Resolved]
  - Rash [Recovered/Resolved]
  - Pain [Recovered/Resolved]
  - Upper respiratory tract infection [Recovered/Resolved]
  - Decreased appetite [Recovered/Resolved]
  - Chills [Recovered/Resolved]
  - Fatigue [Recovered/Resolved]
  - Abdominal distension [Recovered/Resolved]
  - Abdominal pain lower [Recovered/Resolved]
  - Frequent bowel movements [Recovered/Resolved]
  - Anaemia [Recovering/Resolving]
  - Blood iron decreased [Not Recovered/Not Resolved]
  - Gastrointestinal disorder [Not Recovered/Not Resolved]
  - Chronic gastritis [Not Recovered/Not Resolved]
  - Gastrointestinal disorder [Not Recovered/Not Resolved]
  - Chronic gastritis [Not Recovered/Not Resolved]
  - Crohn^s disease [Unknown]
  - Incorrect product storage [Unknown]
  - Inguinal mass [Unknown]
  - Myalgia [Unknown]
  - Cellulitis [Recovering/Resolving]
  - Lymphadenopathy [Recovering/Resolving]
